FAERS Safety Report 5398948-7 (Version None)
Quarter: 2007Q3

REPORT INFORMATION
  Report Type: 
  Country: None (occurrence: None)
  Receive Date: 20070724
  Receipt Date: 20070724
  Transmission Date: 20080115
  Serious: Yes (Hospitalization)
  Sender: FDA-Public Use
  Company Number: None

PATIENT
  Age: 94 Year
  Sex: Male

DRUGS (12)
  1. TAMSULOSIN HCL [Suspect]
     Indication: BENIGN PROSTATIC HYPERPLASIA
     Dosage: 0.4 MG DAILY PO
     Route: 048
     Dates: start: 20060208, end: 20060213
  2. ASPIRIN [Concomitant]
  3. FENOFIBRATE [Concomitant]
  4. PROTONIX [Concomitant]
  5. METOPROLOL SUCCINATE [Concomitant]
  6. LASIX [Concomitant]
  7. ZOCOR [Concomitant]
  8. DONEPEZIL HCL [Concomitant]
  9. SEVELAMER [Concomitant]
  10. TAMSULOSIN HCL [Concomitant]
  11. ACTOS [Concomitant]
  12. GLIPIZIDE [Concomitant]

REACTIONS (3)
  - GENERAL PHYSICAL HEALTH DETERIORATION [None]
  - HALLUCINATION [None]
  - MENTAL STATUS CHANGES [None]
